FAERS Safety Report 23719426 (Version 1)
Quarter: 2024Q2

REPORT INFORMATION
  Report Type: Spontaneous
  Country: US (occurrence: US)
  Receive Date: 20240408
  Receipt Date: 20240408
  Transmission Date: 20240716
  Serious: No
  Sender: FDA-Public Use
  Company Number: US-FreseniusKabi-FK202405399

PATIENT
  Age: 77 Year
  Sex: Male
  Weight: 86.2 kg

DRUGS (1)
  1. HEPARIN SODIUM [Suspect]
     Active Substance: HEPARIN SODIUM
     Indication: Product used for unknown indication
     Dosage: FORM OF ADMIN: INJECTION?DOSE: 12000 UNITS ONCE
     Dates: start: 20240325, end: 20240325

REACTIONS (1)
  - Drug ineffective [Unknown]

NARRATIVE: CASE EVENT DATE: 20240325
